FAERS Safety Report 7784063-1 (Version None)
Quarter: 2011Q3

REPORT INFORMATION
  Report Type: 
  Country: None (occurrence: None)
  Receive Date: 20110928
  Receipt Date: 20110620
  Transmission Date: 20111222
  Serious: No
  Sender: FDA-Public Use
  Company Number: US-BAYER-2011-054036

PATIENT
  Age: 73 Year
  Sex: Male
  Weight: 67 kg

DRUGS (9)
  1. METFORMIN HCL [Concomitant]
  2. LIPITOR [Concomitant]
     Route: 048
  3. METOPROLOL TARTRATE [Concomitant]
     Route: 048
  4. ISOSORBIDE DINITRATE [Concomitant]
     Route: 048
  5. TRAMADOL [Concomitant]
     Route: 048
  6. ALEVE (CAPLET) [Suspect]
     Indication: MYALGIA
     Dosage: 2 QD
     Route: 048
     Dates: start: 20110618
  7. OLMESARTAN MEDOXOMIL [Concomitant]
     Route: 048
  8. LISINOPRIL [Concomitant]
  9. GLIMEPIRIDE [Concomitant]
     Route: 048

REACTIONS (1)
  - MYALGIA [None]
